FAERS Safety Report 5309756-7 (Version None)
Quarter: 2007Q2

REPORT INFORMATION
  Report Type: 
  Country: None (occurrence: None)
  Receive Date: 20070427
  Receipt Date: 20061023
  Transmission Date: 20071010
  Serious: No
  Sender: FDA-Public Use
  Company Number: US-GLAXOSMITHKLINE-A0624574A

PATIENT
  Age: 29 Year
  Sex: Female

DRUGS (3)
  1. ZOFRAN [Suspect]
     Indication: HYPEREMESIS GRAVIDARUM
     Dosage: 4MG VARIABLE DOSE
     Route: 048
     Dates: start: 20061020
  2. SYNTHROID [Concomitant]
  3. PRENATAL VITAMINS [Concomitant]

REACTIONS (2)
  - DRUG EXPOSURE DURING PREGNANCY [None]
  - DRUG INEFFECTIVE [None]
